FAERS Safety Report 13451728 (Version 1)
Quarter: 2017Q2

REPORT INFORMATION
  Report Type: Spontaneous
  Country: US (occurrence: US)
  Receive Date: 20170418
  Receipt Date: 20170418
  Transmission Date: 20170830
  Serious: No
  Sender: FDA-Public Use
  Company Number: US-PFIZER INC-2017162080

PATIENT
  Sex: Female

DRUGS (2)
  1. XELJANZ XR [Suspect]
     Active Substance: TOFACITINIB CITRATE
     Indication: RHEUMATOID ARTHRITIS
     Dosage: 11 MG, UNK
  2. MEDROL [Suspect]
     Active Substance: METHYLPREDNISOLONE
     Indication: RHEUMATOID ARTHRITIS
     Dosage: UNK

REACTIONS (22)
  - Weight increased [Unknown]
  - Pollakiuria [Unknown]
  - Skin mass [Unknown]
  - Musculoskeletal stiffness [Not Recovered/Not Resolved]
  - Joint swelling [Unknown]
  - Myalgia [Unknown]
  - Initial insomnia [Unknown]
  - Arthralgia [Unknown]
  - Pain in extremity [Unknown]
  - Muscular weakness [Unknown]
  - Increased tendency to bruise [Unknown]
  - Agitation [Unknown]
  - Fatigue [Unknown]
  - Asthenia [Unknown]
  - Cold sweat [Unknown]
  - Dry mouth [Unknown]
  - Night sweats [Unknown]
  - Hot flush [Unknown]
  - Erythema [Unknown]
  - Rash [Unknown]
  - Synovitis [Unknown]
  - Paraesthesia [Unknown]
